FAERS Safety Report 10191363 (Version 1)
Quarter: 2014Q2

REPORT INFORMATION
  Report Type: Spontaneous
  Country: MY (occurrence: MY)
  Receive Date: 20140523
  Receipt Date: 20140523
  Transmission Date: 20141212
  Serious: Yes (Hospitalization, Other)
  Sender: FDA-Public Use
  Company Number: MY-PFIZER INC-2014140443

PATIENT
  Age: 35 Year
  Sex: Female

DRUGS (6)
  1. CEFUROXIME [Suspect]
     Indication: PELVIC INFLAMMATORY DISEASE
     Dosage: 750 MG, 3X/DAY
  2. CEFUROXIME [Suspect]
     Indication: PYREXIA
  3. METRONIDAZOLE [Suspect]
     Indication: PELVIC INFLAMMATORY DISEASE
     Dosage: 500 MG, 3X/DAY
  4. METRONIDAZOLE [Suspect]
     Indication: PYREXIA
  5. AMPICILLIN [Concomitant]
     Indication: PELVIC INFLAMMATORY DISEASE
     Dosage: 500 MG, 3X/DAY (3 DOSES)
     Route: 042
  6. AMPICILLIN [Concomitant]
     Indication: PYREXIA

REACTIONS (1)
  - Substance-induced psychotic disorder [Recovered/Resolved]
